FAERS Safety Report 10151984 (Version 2)
Quarter: 2014Q2

REPORT INFORMATION
  Report Type: Spontaneous
  Country: FR (occurrence: FR)
  Receive Date: 20140505
  Receipt Date: 20140505
  Transmission Date: 20141212
  Serious: Yes (Other)
  Sender: FDA-Public Use
  Company Number: FR-MERCK-1403FRA013163

PATIENT
  Age: 36 Year
  Sex: Female
  Weight: 110 kg

DRUGS (2)
  1. ISENTRESS [Suspect]
     Indication: HIV INFECTION
     Dosage: 1 DF, BID
     Route: 065
     Dates: start: 20140122
  2. TRUVADA [Concomitant]
     Dosage: 1 DF, QD
     Dates: start: 20140122

REACTIONS (3)
  - Caesarean section [Recovered/Resolved]
  - Arrested labour [Recovered/Resolved]
  - Exposure during pregnancy [Recovered/Resolved]
